FAERS Safety Report 23672358 (Version 1)
Quarter: 2024Q1

REPORT INFORMATION
  Report Type: Spontaneous
  Country: US (occurrence: US)
  Receive Date: 20240326
  Receipt Date: 20240326
  Transmission Date: 20240409
  Serious: Yes (Other)
  Sender: FDA-Public Use
  Company Number: US-MYLANLABS-2024M1026741

PATIENT
  Age: 30 Year
  Sex: Female

DRUGS (16)
  1. OXALIPLATIN [Suspect]
     Active Substance: OXALIPLATIN
     Indication: Ovarian epithelial cancer
     Dosage: UNK, FOUR TWO-WEEK CYCLES
     Route: 065
  2. OXALIPLATIN [Suspect]
     Active Substance: OXALIPLATIN
     Indication: Ovarian cancer stage III
  3. FLUOROURACIL [Suspect]
     Active Substance: FLUOROURACIL
     Indication: Ovarian epithelial cancer
     Dosage: UNK, FOUR TWO-WEEK CYCLES
     Route: 065
  4. FLUOROURACIL [Suspect]
     Active Substance: FLUOROURACIL
     Indication: Ovarian cancer stage III
  5. LEUCOVORIN [Suspect]
     Active Substance: LEUCOVORIN\LEUCOVORIN CALCIUM
     Indication: Chemotherapy side effect prophylaxis
     Dosage: UNK
     Route: 065
  6. FAMOTIDINE [Suspect]
     Active Substance: FAMOTIDINE
     Indication: Type I hypersensitivity
     Dosage: 20 MILLIGRAM
     Route: 042
  7. DIPHENHYDRAMINE [Suspect]
     Active Substance: DIPHENHYDRAMINE
     Indication: Type I hypersensitivity
     Dosage: 25 MILLIGRAM
     Route: 042
  8. DIPHENHYDRAMINE [Suspect]
     Active Substance: DIPHENHYDRAMINE
     Dosage: 50 MILLIGRAM
     Route: 042
  9. CETIRIZINE [Suspect]
     Active Substance: CETIRIZINE HYDROCHLORIDE
     Indication: Type I hypersensitivity
     Dosage: 10 MILLIGRAM
     Route: 048
  10. MONTELUKAST [Suspect]
     Active Substance: MONTELUKAST SODIUM
     Indication: Type I hypersensitivity
     Dosage: 10 MILLIGRAM
     Route: 048
  11. MONTELUKAST [Suspect]
     Active Substance: MONTELUKAST SODIUM
     Indication: Prophylaxis
  12. ONDANSETRON [Suspect]
     Active Substance: ONDANSETRON
     Indication: Type I hypersensitivity
     Dosage: 16 MILLIGRAM
     Route: 042
  13. ONDANSETRON [Suspect]
     Active Substance: ONDANSETRON
     Indication: Prophylaxis
  14. FAMOTIDINE [Suspect]
     Active Substance: FAMOTIDINE
     Indication: Type I hypersensitivity
     Dosage: 40 MILLIGRAM
     Route: 048
  15. FAMOTIDINE [Suspect]
     Active Substance: FAMOTIDINE
     Indication: Prophylaxis
  16. METHYLPREDNISOLONE [Suspect]
     Active Substance: METHYLPREDNISOLONE
     Indication: Maternal therapy to enhance foetal lung maturity
     Dosage: 80 MILLIGRAM
     Route: 042

REACTIONS (2)
  - Type I hypersensitivity [Recovered/Resolved]
  - Maternal exposure during pregnancy [Recovered/Resolved]
